FAERS Safety Report 20605861 (Version 1)
Quarter: 2022Q1

REPORT INFORMATION
  Report Type: Spontaneous
  Country: US (occurrence: US)
  Receive Date: 20220317
  Receipt Date: 20220317
  Transmission Date: 20220424
  Serious: No
  Sender: FDA-Public Use
  Company Number: US-KYOWAKIRIN-2022BKK003539

PATIENT

DRUGS (1)
  1. NOURIANZ [Suspect]
     Active Substance: ISTRADEFYLLINE
     Indication: Parkinson^s disease
     Dosage: 20 MG, DAILY
     Route: 048
     Dates: start: 202001

REACTIONS (3)
  - Amnesia [Not Recovered/Not Resolved]
  - Stress [Not Recovered/Not Resolved]
  - Dyskinesia [Not Recovered/Not Resolved]
